FAERS Safety Report 15855284 (Version 2)
Quarter: 2019Q2

REPORT INFORMATION
  Report Type: Report from Study
  Country: BR (occurrence: BR)
  Receive Date: 20190122
  Receipt Date: 20190416
  Transmission Date: 20190711
  Serious: Yes (Other)
  Sender: FDA-Public Use
  Company Number: PHHY2019BR009717

PATIENT
  Age: 64 Year
  Sex: Female
  Weight: 46 kg

DRUGS (3)
  1. LEE011 [Suspect]
     Active Substance: RIBOCICLIB
     Indication: BREAST CANCER
     Dosage: 600 MG, QD (3 TABLETS OF 200 MG) (DAILY ON D1-D21, 28 DAY CYCLES)
     Route: 048
     Dates: start: 20181114
  2. LEE011 [Suspect]
     Active Substance: RIBOCICLIB
     Dosage: 400 MG, QD
     Route: 048
  3. LETROZOLE. [Suspect]
     Active Substance: LETROZOLE
     Indication: BREAST CANCER
     Dosage: 2.5 MG, QD D1-D28 (28 DAY CYCLES)
     Route: 048
     Dates: start: 20181114

REACTIONS (6)
  - Nausea [Recovered/Resolved]
  - Neutropenia [Recovering/Resolving]
  - Thrombocytopenia [Recovered/Resolved]
  - Cholelithiasis [Unknown]
  - Blood bilirubin increased [Unknown]
  - Transaminases increased [Not Recovered/Not Resolved]

NARRATIVE: CASE EVENT DATE: 20181120
